FAERS Safety Report 7765037-3 (Version None)
Quarter: 2011Q3

REPORT INFORMATION
  Report Type: 
  Country: None (occurrence: None)
  Receive Date: 20110916
  Receipt Date: 20110908
  Transmission Date: 20111222
  Serious: Yes (Hospitalization, Other)
  Sender: FDA-Public Use
  Company Number: 2009-198567-NL

PATIENT
  Age: 21 Year
  Sex: Female
  Weight: 69.4003 kg

DRUGS (4)
  1. MIRENA [Suspect]
     Indication: CONTRACEPTION
     Dates: start: 20091229
  2. CEPHALEXIN [Concomitant]
  3. AMITRIPTYLENE [Concomitant]
  4. NUVARING [Suspect]
     Indication: CONTRACEPTION
     Dates: start: 20061221, end: 20080101

REACTIONS (35)
  - BRONCHITIS [None]
  - PREGNANCY [None]
  - VAGINAL HAEMORRHAGE [None]
  - MUSCULOSKELETAL PAIN [None]
  - HEADACHE [None]
  - DEPRESSION [None]
  - APPENDICECTOMY [None]
  - PROTEINURIA [None]
  - ADNEXA UTERI CYST [None]
  - DECREASED APPETITE [None]
  - NODULE [None]
  - HYPOAESTHESIA [None]
  - HYPOKALAEMIA [None]
  - REFUSAL OF TREATMENT BY PATIENT [None]
  - MIGRAINE [None]
  - CONTUSION [None]
  - FLANK PAIN [None]
  - ANAEMIA [None]
  - PULMONARY EMBOLISM [None]
  - PELVIC PAIN [None]
  - VIRAL UPPER RESPIRATORY TRACT INFECTION [None]
  - MENORRHAGIA [None]
  - FEELING COLD [None]
  - PARAESTHESIA [None]
  - HYPEREMESIS GRAVIDARUM [None]
  - DYSMENORRHOEA [None]
  - DYSPAREUNIA [None]
  - MYOCARDIAL INFARCTION [None]
  - GASTROENTERITIS [None]
  - COLONIC POLYP [None]
  - ROTATOR CUFF SYNDROME [None]
  - UTERINE HAEMORRHAGE [None]
  - WEIGHT DECREASED [None]
  - VIRAL INFECTION [None]
  - DEEP VEIN THROMBOSIS [None]
